FAERS Safety Report 14675127 (Version 4)
Quarter: 2021Q4

REPORT INFORMATION
  Report Type: Spontaneous
  Country: CA (occurrence: CA)
  Receive Date: 20180323
  Receipt Date: 20211231
  Transmission Date: 20220303
  Serious: Yes (Disabling, Other)
  Sender: FDA-Public Use
  Company Number: CA-SA-2017SA020200

PATIENT
  Age: 63 Year
  Sex: Female

DRUGS (20)
  1. PLAQUENIL [Suspect]
     Active Substance: HYDROXYCHLOROQUINE SULFATE
     Indication: Product used for unknown indication
     Dosage: 200 MG,BID
     Route: 048
  2. PLAQUENIL [Suspect]
     Active Substance: HYDROXYCHLOROQUINE SULFATE
     Dosage: 400 MG, QD
  3. ARAVA [Suspect]
     Active Substance: LEFLUNOMIDE
     Indication: Product used for unknown indication
     Dosage: 20 MG,QD
     Route: 048
  4. SULFASALAZINE [Suspect]
     Active Substance: SULFASALAZINE
     Indication: Rheumatoid arthritis
     Dosage: 500 MG,BID
     Route: 048
  5. SULFASALAZINE [Suspect]
     Active Substance: SULFASALAZINE
     Dosage: 1000 MG,BID
     Route: 048
  6. ATENOLOL [Suspect]
     Active Substance: ATENOLOL
     Dosage: 25 MG,QD
  7. FOLIC ACID [Suspect]
     Active Substance: FOLIC ACID
     Dosage: 5 MG,BIW
     Route: 065
  8. METHOTREXATE [Suspect]
     Active Substance: METHOTREXATE
     Indication: Rheumatoid arthritis
     Dosage: 25 MG,QOW
     Route: 048
  9. METHOTREXATE [Suspect]
     Active Substance: METHOTREXATE
     Dosage: 20 MG,QOW
     Route: 048
  10. METHOTREXATE [Suspect]
     Active Substance: METHOTREXATE
     Dosage: 20 MG, QW
     Route: 048
  11. NAPROXEN [Suspect]
     Active Substance: NAPROXEN
     Dosage: 500 MG,BID
     Route: 048
     Dates: start: 20140109
  12. NAPROXEN [Suspect]
     Active Substance: NAPROXEN
     Dosage: 1000 MG, QD
     Route: 048
  13. ASCORBIC ACID\FERROUS FUMARATE\FOLIC ACID [Suspect]
     Active Substance: ASCORBIC ACID\FERROUS FUMARATE\FOLIC ACID
     Indication: Product used for unknown indication
     Dosage: 1 DF,QD
  14. PANTOPRAZOLE [Suspect]
     Active Substance: PANTOPRAZOLE
     Indication: Product used for unknown indication
     Dosage: 40 MG,QD
  15. HUMIRA [Suspect]
     Active Substance: ADALIMUMAB
     Indication: Product used for unknown indication
     Dosage: UNK UNK,UNK
     Route: 058
  16. ORENCIA [Suspect]
     Active Substance: ABATACEPT
     Indication: Product used for unknown indication
     Dosage: UNK UNK,UNK
  17. ENBREL [Suspect]
     Active Substance: ETANERCEPT
     Indication: Rheumatoid arthritis
     Dosage: 40 MG,QD
     Route: 058
  18. CELEBREX [Concomitant]
     Active Substance: CELECOXIB
  19. PREDNISONE [Concomitant]
     Active Substance: PREDNISONE
  20. CELECOXIB [Concomitant]
     Active Substance: CELECOXIB

REACTIONS (18)
  - Haematocrit decreased [Unknown]
  - Haemoglobin decreased [Unknown]
  - Red blood cell count decreased [Unknown]
  - Rheumatoid arthritis [Unknown]
  - Disability [Unknown]
  - Rash [Unknown]
  - Drug ineffective [Unknown]
  - Contraindicated product administered [Unknown]
  - C-reactive protein increased [Unknown]
  - Musculoskeletal pain [Unknown]
  - Drug hypersensitivity [Unknown]
  - Red blood cell sedimentation rate abnormal [Unknown]
  - Arthralgia [Unknown]
  - Peripheral swelling [Unknown]
  - Pain in extremity [Unknown]
  - Joint swelling [Unknown]
  - Drug-induced liver injury [Unknown]
  - Condition aggravated [Unknown]
